FAERS Safety Report 8762807 (Version 2)
Quarter: 2012Q4

REPORT INFORMATION
  Report Type: 
  Country: US (occurrence: US)
  Receive Date: 20120830
  Receipt Date: 20120910
  Transmission Date: 20130627
  Serious: Yes (Death, Hospitalization)
  Sender: FDA-Public Use
  Company Number: US-GILEAD-2012-0057838

PATIENT
  Sex: Male

DRUGS (3)
  1. LETAIRIS [Suspect]
     Indication: PULMONARY ARTERIAL HYPERTENSION
     Dosage: 10 mg, UNK
     Route: 048
     Dates: start: 20110527
  2. LETAIRIS [Suspect]
     Indication: EMPHYSEMA
  3. LETAIRIS [Suspect]
     Indication: HYPOXIA

REACTIONS (4)
  - Respiratory failure [Fatal]
  - Respiratory failure [Unknown]
  - Emphysema [Unknown]
  - Pulmonary arterial hypertension [Unknown]
